FAERS Safety Report 21324665 (Version 3)
Quarter: 2022Q4

REPORT INFORMATION
  Report Type: Spontaneous
  Country: US (occurrence: US)
  Receive Date: 20220912
  Receipt Date: 20221219
  Transmission Date: 20230112
  Serious: Yes (Other)
  Sender: FDA-Public Use
  Company Number: US-JNJFOC-20220918617

PATIENT
  Age: 87 Year
  Sex: Male

DRUGS (8)
  1. ELMIRON [Suspect]
     Active Substance: PENTOSAN POLYSULFATE SODIUM
     Indication: Cystitis interstitial
     Route: 048
     Dates: start: 20170127, end: 202110
  2. LOSARTAN [Concomitant]
     Active Substance: LOSARTAN
     Indication: Hypertension
     Dates: start: 20190101
  3. FUROSEMIDE [Concomitant]
     Active Substance: FUROSEMIDE
     Indication: Fluid retention
     Dates: start: 20220520
  4. ASPIRIN [Concomitant]
     Active Substance: ASPIRIN
     Indication: Cardiac disorder
     Dates: start: 20170101
  5. FINASTERIDE [Concomitant]
     Active Substance: FINASTERIDE
     Indication: Urinary retention
     Dates: start: 20140315
  6. ATORVASTATIN [Concomitant]
     Active Substance: ATORVASTATIN
     Indication: Blood cholesterol increased
     Dates: start: 20170101
  7. PLEXUS BIO CLEANSE [Concomitant]
     Indication: Gastrointestinal disorder
     Dates: start: 20210101
  8. ISOSORBIDE MONONITRATE [Concomitant]
     Active Substance: ISOSORBIDE MONONITRATE
     Indication: Chest pain
     Dates: start: 20050509

REACTIONS (1)
  - Retinal pigmentation [Unknown]

NARRATIVE: CASE EVENT DATE: 20220701
